FAERS Safety Report 26095202 (Version 1)
Quarter: 2025Q4

REPORT INFORMATION
  Report Type: Spontaneous
  Country: US (occurrence: US)
  Receive Date: 20251127
  Receipt Date: 20251127
  Transmission Date: 20260118
  Serious: No
  Sender: ROCHE
  Company Number: US-ROCHE-10000441317

PATIENT
  Sex: Female

DRUGS (1)
  1. ACTEMRA ACTPEN [Suspect]
     Active Substance: TOCILIZUMAB
     Indication: Still^s disease
     Dosage: FORM STRENGTH: 162MG/0.9ML
     Route: 058
     Dates: start: 202001

REACTIONS (2)
  - Arthralgia [Unknown]
  - Off label use [Unknown]
